FAERS Safety Report 6907839-9 (Version None)
Quarter: 2010Q3

REPORT INFORMATION
  Report Type: 
  Country: None (occurrence: None)
  Receive Date: 20100712
  Receipt Date: 20100427
  Transmission Date: 20110219
  Serious: No
  Sender: FDA-Public Use
  Company Number: US-000128

PATIENT
  Sex: Female

DRUGS (1)
  1. KUVAN [Suspect]
     Indication: PHENYLKETONURIA
     Dosage: (1300 MG QD ORAL)
     Route: 048
     Dates: start: 20081005

REACTIONS (4)
  - DEPRESSION [None]
  - DRUG ADMINISTRATION ERROR [None]
  - FEELING ABNORMAL [None]
  - HEADACHE [None]
